FAERS Safety Report 8568143 (Version 4)
Quarter: 2012Q4

REPORT INFORMATION
  Report Type: 
  Country: US (occurrence: US)
  Receive Date: 20120518
  Receipt Date: 20121106
  Transmission Date: 20130627
  Serious: Yes (Life-Threatening, Hospitalization)
  Sender: FDA-Public Use
  Company Number: US-BAYER-2012-048626

PATIENT
  Age: 17 Year
  Sex: Female
  Weight: 82.99 kg

DRUGS (12)
  1. OCELLA [Suspect]
     Indication: BLOOD TESTOSTERONE INCREASED
     Dosage: UNK
     Dates: end: 201005
  2. OCELLA [Suspect]
     Indication: BLOOD TESTOSTERONE INCREASED
     Dosage: UNK
     Dates: start: 200904, end: 201004
  3. AMITRIPTYLINE [Concomitant]
     Indication: INSOMNIA
  4. SUMATRIPTAN [Concomitant]
     Indication: ABORTION INDUCED
  5. VASOPRESSIN [Concomitant]
  6. DOPAMINE [Concomitant]
  7. AMIODARONE [Concomitant]
  8. PHENAZOPYRIDINE HYDROCHLORIDE [Concomitant]
     Dosage: 200 mg, TID
     Route: 048
  9. NITROFURANTOIN [Concomitant]
     Dosage: 100 mg, BID
  10. ZOFRAN [Concomitant]
     Dosage: 4 mg, UNK
  11. TORADOL [Concomitant]
     Dosage: 30 mg, UNK
     Route: 042
  12. ROCEHIN 1G [Concomitant]
     Dosage: 1 g, UNK
     Route: 042

REACTIONS (11)
  - Cardiac arrest [None]
  - Coma [None]
  - Brain injury [None]
  - Pain [None]
  - Injury [None]
  - General physical health deterioration [None]
  - Quality of life decreased [None]
  - General physical health deterioration [None]
  - Emotional distress [None]
  - Anxiety [None]
  - Anhedonia [None]
